FAERS Safety Report 6911731-3 (Version None)
Quarter: 2010Q3

REPORT INFORMATION
  Report Type: 
  Country: None (occurrence: None)
  Receive Date: 20100806
  Receipt Date: 20100729
  Transmission Date: 20110219
  Serious: No
  Sender: FDA-Public Use
  Company Number: US-ROXANE LABORATORIES, INC.-2010-RO-00987RO

PATIENT

DRUGS (2)
  1. PREDNISONE [Suspect]
  2. PRIMIDONE [Suspect]
     Dosage: 50 MG

REACTIONS (1)
  - DRUG DISPENSING ERROR [None]
